FAERS Safety Report 10686337 (Version 2)
Quarter: 2015Q3

REPORT INFORMATION
  Report Type: Spontaneous
  Country: KR (occurrence: KR)
  Receive Date: 20141231
  Receipt Date: 20150925
  Transmission Date: 20151125
  Serious: Yes (Death, Other)
  Sender: FDA-Public Use
  Company Number: KR-CELGENE-KOR-2014124156

PATIENT

DRUGS (6)
  1. CYCLOSPORINE. [Concomitant]
     Active Substance: CYCLOSPORINE
     Indication: PROPHYLAXIS
     Route: 041
  2. FLUDARABINE [Concomitant]
     Active Substance: FLUDARABINE PHOSPHATE
     Indication: PRODUCT USED FOR UNKNOWN INDICATION
     Dosage: 75 MILLIGRAM/SQ. METER
     Route: 041
  3. METHOTREXATE [Concomitant]
     Active Substance: METHOTREXATE
     Indication: PROPHYLAXIS
     Route: 041
  4. VIDAZA [Suspect]
     Active Substance: AZACITIDINE
     Indication: MYELODYSPLASTIC SYNDROME
     Route: 058
     Dates: start: 200710, end: 201108
  5. METHOTREXATE [Concomitant]
     Active Substance: METHOTREXATE
     Route: 041
  6. BUSULFAN [Concomitant]
     Active Substance: BUSULFAN
     Indication: PRODUCT USED FOR UNKNOWN INDICATION
     Route: 041

REACTIONS (15)
  - Colitis [Fatal]
  - Splenic abscess [Unknown]
  - Graft versus host disease [Fatal]
  - Chronic graft versus host disease [Fatal]
  - Septic shock [Fatal]
  - Colitis [Unknown]
  - Herpes zoster [Unknown]
  - Acute graft versus host disease [Unknown]
  - Pulmonary toxicity [Unknown]
  - Myelodysplastic syndrome [Fatal]
  - Hepatotoxicity [Unknown]
  - Pneumonia [Unknown]
  - Leukaemia [Unknown]
  - Nephropathy toxic [Unknown]
  - Infection [Fatal]
